FAERS Safety Report 10479526 (Version 1)
Quarter: 2014Q3

REPORT INFORMATION
  Report Type: Spontaneous
  Country: US (occurrence: None)
  Receive Date: 20140926
  Receipt Date: 20140926
  Transmission Date: 20150326
  Serious: Yes (Other)
  Sender: FDA-Public Use
  Company Number: None

PATIENT
  Age: 65 Year
  Sex: Female
  Weight: 66.68 kg

DRUGS (2)
  1. TRAZODONE [Suspect]
     Active Substance: TRAZODONE HYDROCHLORIDE
     Indication: INSOMNIA
     Dosage: 1 PILL, AT BEDTIME, TAKEN BY MOUTH
     Route: 048
  2. TRAZODONE [Suspect]
     Active Substance: TRAZODONE HYDROCHLORIDE
     Indication: DEPRESSION
     Dosage: 1 PILL, AT BEDTIME, TAKEN BY MOUTH
     Route: 048

REACTIONS (8)
  - Product taste abnormal [None]
  - Quality of life decreased [None]
  - Product odour abnormal [None]
  - Drug ineffective [None]
  - Product physical issue [None]
  - Product substitution issue [None]
  - Depression [None]
  - Insomnia [None]

NARRATIVE: CASE EVENT DATE: 20140617
